FAERS Safety Report 8176758-5 (Version None)
Quarter: 2012Q1

REPORT INFORMATION
  Report Type: 
  Country: None (occurrence: None)
  Receive Date: 20120301
  Receipt Date: 20120223
  Transmission Date: 20120608
  Serious: Yes (Other)
  Sender: FDA-Public Use
  Company Number: CZ-ABBOTT-12P-217-0908755-00

PATIENT
  Age: 22 Year
  Sex: Female

DRUGS (4)
  1. HUMIRA [Suspect]
     Indication: PRODUCT USED FOR UNKNOWN INDICATION
  2. HUMIRA [Suspect]
  3. HUMIRA [Suspect]
  4. CORTICOSTEROIDS [Concomitant]
     Indication: PRODUCT USED FOR UNKNOWN INDICATION

REACTIONS (7)
  - QUADRIPARESIS [None]
  - PULMONARY CONGESTION [None]
  - GASTROINTESTINAL DISORDER [None]
  - HYPOGAMMAGLOBULINAEMIA [None]
  - NERVOUS SYSTEM DISORDER [None]
  - ARTHROPATHY [None]
  - SINUSITIS [None]
